FAERS Safety Report 24761157 (Version 1)
Quarter: 2024Q4

REPORT INFORMATION
  Report Type: Report from Study
  Country: ES (occurrence: ES)
  Receive Date: 20241220
  Receipt Date: 20241220
  Transmission Date: 20250115
  Serious: Yes (Other)
  Sender: JOHNSON AND JOHNSON
  Company Number: ES-JNJFOC-20240589709

PATIENT
  Age: 45 Year
  Sex: Female

DRUGS (2)
  1. SPRAVATO [Suspect]
     Active Substance: ESKETAMINE
     Indication: Depression
     Dosage: 08-FEB-2024, 12-FEB-2024, 15-FEB-2024, 20-FEB-2024, 22-FEB-2024, 27-FEB-2024, 29-FEB-2024, 05-MAR-20
     Route: 045
     Dates: start: 20240206, end: 20240305
  2. SPRAVATO [Suspect]
     Active Substance: ESKETAMINE
     Dosage: 12-MAR-2024, 14-MAR-2024, 19-MAR-2024, 21-MAR-2024, 26-MAR-2024, 04-APR-2024, 09-APR-2024, 11-APR-20
     Route: 045
     Dates: start: 20240307, end: 20240430

REACTIONS (2)
  - Suicidal ideation [Recovered/Resolved]
  - Dizziness [Recovered/Resolved]

NARRATIVE: CASE EVENT DATE: 20240222
